FAERS Safety Report 8090884 (Version 7)
Quarter: 2013Q1

REPORT INFORMATION
  Report Type: Spontaneous
  Country: US (occurrence: US)
  Receive Date: 20110815
  Receipt Date: 20130208
  Transmission Date: 20140127
  Serious: No
  Sender: FDA-Public Use
  Company Number: US-B.I. PHARMACEUTICALS,INC./RIDGEFIELD-2011-BP-18963BP

PATIENT
  Sex: Female

DRUGS (8)
  1. COMBIVENT INHALATION AEROSOL [Suspect]
     Indication: EMPHYSEMA
     Dosage: 16 PUF
     Route: 055
     Dates: start: 2002
  2. SPIRIVA [Suspect]
     Dosage: 18 MCG
     Route: 055
     Dates: start: 2009
  3. ADVAIR [Concomitant]
     Indication: EMPHYSEMA
     Dosage: 2 PUF
     Route: 055
     Dates: start: 2010
  4. PREDNISONE (TAPER DOSE) [Concomitant]
     Indication: EMPHYSEMA
     Route: 048
  5. REVATIO [Concomitant]
     Indication: EMPHYSEMA
     Dosage: 60 MG
     Route: 048
     Dates: start: 201202
  6. FUROSEMIDE [Concomitant]
     Indication: FLUID RETENTION
     Route: 048
     Dates: start: 201112
  7. POTASSIUM [Concomitant]
     Indication: ELECTROLYTE SUBSTITUTION THERAPY
     Route: 048
     Dates: start: 201112
  8. OXYGEN [Concomitant]
     Indication: EMPHYSEMA
     Route: 045

REACTIONS (5)
  - Drug ineffective [Unknown]
  - Drug ineffective [Not Recovered/Not Resolved]
  - Emphysema [Not Recovered/Not Resolved]
  - Product quality issue [Not Recovered/Not Resolved]
  - Drug ineffective [Not Recovered/Not Resolved]
